FAERS Safety Report 10141860 (Version 1)
Quarter: 2014Q2

REPORT INFORMATION
  Report Type: Spontaneous
  Country: CL (occurrence: CL)
  Receive Date: 20140429
  Receipt Date: 20140429
  Transmission Date: 20141212
  Serious: Yes (Hospitalization, Other)
  Sender: FDA-Public Use
  Company Number: CL-WATSON-2014-08323

PATIENT
  Age: 25 Year
  Sex: 0

DRUGS (5)
  1. TRIMETHOPRIM-SULFAMETHOXAZOLE (UNKNOWN) [Suspect]
     Indication: ANTIFUNGAL PROPHYLAXIS
     Dosage: 960 MG, DAILY
     Route: 065
  2. CALCIUM FOLINATE (UNKNOWN) [Suspect]
     Indication: PROPHYLAXIS
     Dosage: 15 MG, DAILY
     Route: 065
  3. FLUCONAZOLE [Concomitant]
     Indication: PROPHYLAXIS
     Dosage: 150 MG, DAILY
     Route: 065
  4. ABACAVIR W/LAMIVUDINE [Concomitant]
     Indication: ANTIRETROVIRAL THERAPY
     Dosage: UNK
     Route: 065
  5. EFAVIRENZ [Concomitant]
     Indication: ANTIRETROVIRAL THERAPY
     Dosage: UNK
     Route: 065

REACTIONS (2)
  - Pneumocystis jirovecii pneumonia [Recovered/Resolved]
  - Drug ineffective [Recovered/Resolved]
